FAERS Safety Report 9304549 (Version 2)
Quarter: 2013Q3

REPORT INFORMATION
  Report Type: Spontaneous
  Country: US (occurrence: US)
  Receive Date: 20130523
  Receipt Date: 20130702
  Transmission Date: 20140515
  Serious: No
  Sender: FDA-Public Use
  Company Number: US-009507513-1305USA012751

PATIENT
  Sex: Male
  Weight: 68.27 kg

DRUGS (5)
  1. JANUMET XR [Suspect]
     Indication: BLOOD GLUCOSE INCREASED
     Dosage: UNK, BID
     Route: 048
     Dates: start: 2005
  2. JANUMET XR [Suspect]
     Indication: TYPE 2 DIABETES MELLITUS
  3. CRESTOR [Concomitant]
  4. RAMIPRIL [Concomitant]
  5. METOPROLOL [Concomitant]

REACTIONS (1)
  - Muscle spasms [Not Recovered/Not Resolved]
